FAERS Safety Report 5527290-6 (Version None)
Quarter: 2007Q4

REPORT INFORMATION
  Report Type: 
  Country: None (occurrence: None)
  Receive Date: 20071128
  Receipt Date: 20071115
  Transmission Date: 20080405
  Serious: Yes (Disabling)
  Sender: FDA-Public Use
  Company Number: B0478984A

PATIENT
  Age: 60 Year
  Sex: Male
  Weight: 69 kg

DRUGS (5)
  1. HEPSERA [Suspect]
     Indication: HEPATIC CIRRHOSIS
     Dosage: 10MG PER DAY
     Route: 048
     Dates: start: 20030101, end: 20061121
  2. ZEFIX [Suspect]
     Indication: HEPATIC CIRRHOSIS
     Dosage: 100MG PER DAY
     Route: 048
     Dates: start: 20000601, end: 20061121
  3. URSO 250 [Concomitant]
     Indication: HEPATIC CIRRHOSIS
     Dosage: 300MG PER DAY
     Route: 048
     Dates: start: 20000601
  4. ARTIST [Concomitant]
     Indication: HYPERTENSION
     Dosage: 10MG PER DAY
     Route: 048
  5. TORSEMIDE [Concomitant]
     Indication: HYPERTENSION
     Dosage: 4MG PER DAY
     Route: 048

REACTIONS (7)
  - ARTHRALGIA [None]
  - BACK PAIN [None]
  - BLOOD ALKALINE PHOSPHATASE INCREASED [None]
  - GAIT DISTURBANCE [None]
  - HYPOPHOSPHATAEMIA [None]
  - OSTEOMALACIA [None]
  - RENAL TUBULAR DISORDER [None]
